FAERS Safety Report 5495312-7 (Version None)
Quarter: 2007Q4

REPORT INFORMATION
  Report Type: 
  Country: None (occurrence: None)
  Receive Date: 20071024
  Receipt Date: 20071012
  Transmission Date: 20080405
  Serious: Yes (Other)
  Sender: FDA-Public Use
  Company Number: US-PFIZER INC-2007086485

PATIENT
  Sex: Male
  Weight: 113.4 kg

DRUGS (4)
  1. CHANTIX [Suspect]
     Indication: SMOKING CESSATION THERAPY
     Route: 048
     Dates: start: 20070901, end: 20071001
  2. RISPERDAL [Concomitant]
     Indication: BIPOLAR DISORDER
     Route: 048
  3. CELEXA [Concomitant]
     Indication: DEPRESSION
     Route: 048
  4. DEPAKOTE [Concomitant]
     Indication: DEPRESSION
     Route: 048

REACTIONS (8)
  - ANXIETY [None]
  - BIPOLAR I DISORDER [None]
  - FEELING ABNORMAL [None]
  - FEELING COLD [None]
  - MENTAL IMPAIRMENT [None]
  - NERVOUSNESS [None]
  - STRESS [None]
  - SUICIDAL IDEATION [None]
